FAERS Safety Report 6446013-X (Version None)
Quarter: 2009Q4

REPORT INFORMATION
  Report Type: 
  Country: None (occurrence: None)
  Receive Date: 20091119
  Receipt Date: 20090728
  Transmission Date: 20100525
  Serious: No
  Sender: FDA-Public Use
  Company Number: A0799108A

PATIENT
  Age: 47 Year
  Sex: Female

DRUGS (5)
  1. WELLBUTRIN SR [Suspect]
     Indication: CHRONIC FATIGUE SYNDROME
     Dosage: 150MG PER DAY
     Route: 048
  2. SPIRONOLACTONE [Concomitant]
  3. EFFEXOR XR [Concomitant]
  4. TOPAMAX [Concomitant]
  5. NORTRIPTYLINE [Concomitant]

REACTIONS (6)
  - AGITATION [None]
  - ANXIETY [None]
  - FEELING ABNORMAL [None]
  - FEELING HOT [None]
  - HEADACHE [None]
  - IRRITABILITY [None]
